FAERS Safety Report 11270018 (Version 2)
Quarter: 2015Q3

REPORT INFORMATION
  Report Type: Spontaneous
  Country: FI (occurrence: FI)
  Receive Date: 20150714
  Receipt Date: 20150831
  Transmission Date: 20151125
  Serious: Yes (Life-Threatening, Other)
  Sender: FDA-Public Use
  Company Number: FI-GLAXOSMITHKLINE-FI2015GSK099521

PATIENT
  Sex: Female

DRUGS (1)
  1. ZINACEF [Suspect]
     Active Substance: CEFUROXIME SODIUM
     Indication: PNEUMONIA
     Dosage: 1.5 G, SINGLE
     Route: 042
     Dates: start: 20150619

REACTIONS (4)
  - Anaphylactic reaction [Recovering/Resolving]
  - Feeling abnormal [Recovering/Resolving]
  - Cough [Recovering/Resolving]
  - Respiratory arrest [Recovered/Resolved]

NARRATIVE: CASE EVENT DATE: 20150619
